FAERS Safety Report 20641361 (Version 1)
Quarter: 2022Q1

REPORT INFORMATION
  Report Type: Spontaneous
  Country: JP (occurrence: JP)
  Receive Date: 20220328
  Receipt Date: 20220328
  Transmission Date: 20220423
  Serious: Yes (Other)
  Sender: FDA-Public Use
  Company Number: JP-SA-2022SA095422

PATIENT
  Sex: Male

DRUGS (10)
  1. JEVTANA [Suspect]
     Active Substance: CABAZITAXEL
     Indication: Hormone-refractory prostate cancer
     Dosage: UNK
     Route: 041
     Dates: start: 20210204
  2. TAXOTERE [Suspect]
     Active Substance: DOCETAXEL
     Indication: Hormone-refractory prostate cancer
     Dosage: UNK
     Route: 041
     Dates: start: 20200403
  3. PREGABALIN [Suspect]
     Active Substance: PREGABALIN
     Indication: Neuralgia
     Dosage: UNK
     Route: 065
     Dates: start: 20210402, end: 20210408
  4. PREGABALIN [Suspect]
     Active Substance: PREGABALIN
     Dosage: UNK, PRN
     Route: 065
     Dates: start: 20211108
  5. SODIUM CHLORIDE [Concomitant]
     Active Substance: SODIUM CHLORIDE
     Indication: Product used for unknown indication
     Route: 065
  6. POLARAMINE [Concomitant]
     Active Substance: DEXCHLORPHENIRAMINE MALEATE
     Indication: Product used for unknown indication
     Route: 065
  7. DECADRON (DEXAMETHASONE SODIUM PHOSPHATE) [Concomitant]
     Active Substance: DEXAMETHASONE SODIUM PHOSPHATE
     Indication: Product used for unknown indication
     Route: 065
  8. DEXCHLORPHENIRAMINE MALEATE [Concomitant]
     Active Substance: DEXCHLORPHENIRAMINE MALEATE
     Indication: Product used for unknown indication
     Route: 065
  9. GASTER [Concomitant]
     Active Substance: FAMOTIDINE
     Indication: Product used for unknown indication
     Route: 065
  10. DENOSUMAB [Concomitant]
     Active Substance: DENOSUMAB
     Indication: Prostate cancer
     Dosage: UNK
     Route: 065
     Dates: start: 20170904

REACTIONS (31)
  - Metastases to lung [Unknown]
  - Syncope [Unknown]
  - Leukopenia [Unknown]
  - Neutropenia [Unknown]
  - Feeling cold [Recovered/Resolved]
  - Chest discomfort [Recovered/Resolved]
  - Cold sweat [Unknown]
  - Fall [Unknown]
  - Osteoarthritis [Unknown]
  - Back pain [Unknown]
  - Pyrexia [Recovered/Resolved]
  - Constipation [Recovered/Resolved]
  - Pain in extremity [Recovering/Resolving]
  - Malaise [Unknown]
  - Decreased appetite [Recovering/Resolving]
  - Dehydration [Unknown]
  - Muscular weakness [Recovering/Resolving]
  - Taste disorder [Unknown]
  - Meniscus injury [Unknown]
  - Physical deconditioning [Recovering/Resolving]
  - Blood pressure decreased [Unknown]
  - Suspected COVID-19 [Unknown]
  - Cancer pain [Unknown]
  - Hypoaesthesia [Recovering/Resolving]
  - Hypoproteinaemia [Unknown]
  - Eating disorder [Unknown]
  - Neuralgia [Unknown]
  - Dizziness [Recovered/Resolved]
  - Pharyngitis [Unknown]
  - Diarrhoea [Unknown]
  - Dysuria [Unknown]

NARRATIVE: CASE EVENT DATE: 20200404
